FAERS Safety Report 6228492-6 (Version None)
Quarter: 2009Q2

REPORT INFORMATION
  Report Type: 
  Country: None (occurrence: None)
  Receive Date: 20090612
  Receipt Date: 20090605
  Transmission Date: 20091009
  Serious: Yes (Other)
  Sender: FDA-Public Use
  Company Number: US-ELI_LILLY_AND_COMPANY-US200906001558

PATIENT
  Sex: Female

DRUGS (7)
  1. FORTEO [Suspect]
     Dates: start: 20071001
  2. WARFARIN SODIUM [Concomitant]
     Dosage: 1 G, EACH EVENING
  3. LIPITOR [Concomitant]
  4. VITAMIN D [Concomitant]
     Dosage: 50000 U, UNK
     Dates: start: 20081201
  5. HYDROCHLOROTHIAZIDE [Concomitant]
  6. ATENOLOL [Concomitant]
  7. NITROGLYCERIN [Concomitant]

REACTIONS (6)
  - BACK DISORDER [None]
  - BLOOD CALCIUM INCREASED [None]
  - ERUCTATION [None]
  - LOWER LIMB FRACTURE [None]
  - TEMPERATURE INTOLERANCE [None]
  - TRANSIENT ISCHAEMIC ATTACK [None]
